FAERS Safety Report 10378128 (Version 1)
Quarter: 2014Q3

REPORT INFORMATION
  Report Type: Report from Study
  Country: US (occurrence: US)
  Receive Date: 20140812
  Receipt Date: 20140812
  Transmission Date: 20150326
  Serious: Yes (Death, Hospitalization, Other)
  Sender: FDA-Public Use
  Company Number: US-CELGENEUS-163-21880-14081539

PATIENT
  Age: 54 Year
  Sex: Male
  Weight: 121.67 kg

DRUGS (2)
  1. RITUXIMAB [Suspect]
     Active Substance: RITUXIMAB
     Indication: LYMPHOMA
     Route: 065
  2. REVLIMID [Suspect]
     Active Substance: LENALIDOMIDE
     Indication: LYMPHOMA
     Dosage: 20 MILLIGRAM
     Route: 048
     Dates: start: 20081204, end: 20081209

REACTIONS (5)
  - Hepatic failure [Unknown]
  - Haematemesis [Unknown]
  - Tumour lysis syndrome [Unknown]
  - Ventricular arrhythmia [Fatal]
  - Renal failure acute [Unknown]

NARRATIVE: CASE EVENT DATE: 20081216
